FAERS Safety Report 5156101-6 (Version None)
Quarter: 2006Q4

REPORT INFORMATION
  Report Type: 
  Country: None (occurrence: None)
  Receive Date: 20061122
  Receipt Date: 20061113
  Transmission Date: 20070319
  Serious: Yes (Hospitalization, Other)
  Sender: FDA-Public Use
  Company Number: PHRM2006FR03055

PATIENT
  Age: 1 Day
  Sex: Female
  Weight: 1.9 kg

DRUGS (4)
  1. TEGRETOL [Suspect]
     Dosage: MATERNAL DOSE : UNKNOWN
     Route: 064
  2. TRANXENE [Suspect]
     Dosage: MATERNAL DOSE : UNKNOWN
     Route: 064
  3. SUBUTEX [Suspect]
     Dosage: MATERNAL DOSE : 8 MG/DAY
     Route: 064
  4. CORTICOSTEROIDS [Suspect]
     Dosage: MATERNAL DOSE : UNKNOWN
     Route: 064

REACTIONS (19)
  - AGITATION [None]
  - ANTICONVULSANT DRUG LEVEL [None]
  - BODY HEIGHT BELOW NORMAL [None]
  - BODY TEMPERATURE DECREASED [None]
  - COORDINATION ABNORMAL [None]
  - CRYING [None]
  - DRUG EXPOSURE DURING PREGNANCY [None]
  - DRUG WITHDRAWAL SYNDROME NEONATAL [None]
  - EYE MOVEMENT DISORDER [None]
  - FOETAL GROWTH RETARDATION [None]
  - FOETAL HEART RATE DECELERATION [None]
  - JAUNDICE NEONATAL [None]
  - OPIATES [None]
  - PYREXIA [None]
  - SMALL FOR DATES BABY [None]
  - SNEEZING [None]
  - TREMOR NEONATAL [None]
  - URINE CANNABINOIDS INCREASED [None]
  - WEIGHT DECREASED [None]
